FAERS Safety Report 20438393 (Version 3)
Quarter: 2022Q1

REPORT INFORMATION
  Report Type: Spontaneous
  Country: US (occurrence: US)
  Receive Date: 20220207
  Receipt Date: 20220215
  Transmission Date: 20220423
  Serious: No
  Sender: FDA-Public Use
  Company Number: US-BEH-2022141523

PATIENT
  Age: 66 Year
  Sex: Female

DRUGS (2)
  1. HIZENTRA [Suspect]
     Active Substance: HUMAN IMMUNOGLOBULIN G
     Indication: Selective IgG subclass deficiency
     Dosage: 14 GRAM, QW
     Route: 065
     Dates: start: 202011
  2. HIZENTRA [Suspect]
     Active Substance: HUMAN IMMUNOGLOBULIN G
     Dosage: UNK
     Route: 065
     Dates: start: 20220118

REACTIONS (17)
  - Infusion site pain [Not Recovered/Not Resolved]
  - Recalled product administered [Not Recovered/Not Resolved]
  - Infusion site swelling [Not Recovered/Not Resolved]
  - Recalled product administered [Not Recovered/Not Resolved]
  - Feeling hot [Not Recovered/Not Resolved]
  - Recalled product administered [Not Recovered/Not Resolved]
  - Erythema [Not Recovered/Not Resolved]
  - Recalled product administered [Not Recovered/Not Resolved]
  - Inflammation [Not Recovered/Not Resolved]
  - Recalled product administered [Not Recovered/Not Resolved]
  - Infusion site pain [Not Recovered/Not Resolved]
  - Recalled product administered [Not Recovered/Not Resolved]
  - Infusion site induration [Not Recovered/Not Resolved]
  - Recalled product administered [Not Recovered/Not Resolved]
  - Injection site induration [Unknown]
  - Pain [Not Recovered/Not Resolved]
  - Recalled product administered [Not Recovered/Not Resolved]

NARRATIVE: CASE EVENT DATE: 20220119
